FAERS Safety Report 16312114 (Version 3)
Quarter: 2019Q2

REPORT INFORMATION
  Report Type: Spontaneous
  Country: PT (occurrence: PT)
  Receive Date: 20190515
  Receipt Date: 20190624
  Transmission Date: 20190711
  Serious: Yes (Death, Life-Threatening, Other)
  Sender: FDA-Public Use
  Company Number: PT-SA-2019SA131664

PATIENT
  Age: 56 Year
  Sex: Male
  Weight: 85 kg

DRUGS (12)
  1. FLUOROURACIL. [Suspect]
     Active Substance: FLUOROURACIL
     Dosage: EVERY-2 WEEKS
     Route: 040
     Dates: start: 20180626, end: 20180626
  2. FLUOROURACIL. [Suspect]
     Active Substance: FLUOROURACIL
     Dosage: 2400 MG/M2, QCY
     Route: 042
     Dates: start: 20180823, end: 20180823
  3. BEVACIZUMAB. [Suspect]
     Active Substance: BEVACIZUMAB
     Indication: ADENOCARCINOMA OF COLON
     Dosage: EVERY-2 WEEKS
     Route: 042
     Dates: start: 20180626, end: 20180626
  4. OXALIPLATIN. [Suspect]
     Active Substance: OXALIPLATIN
     Dosage: EVERY-2 WEEKS
     Route: 042
     Dates: start: 20180821, end: 20180821
  5. FOLINIC ACID [Suspect]
     Active Substance: LEUCOVORIN
     Dosage: UNK UNK, QCY, EVERY-2 WEEKS
     Route: 042
  6. CALCIUM FOLINATE [Concomitant]
     Active Substance: LEUCOVORIN CALCIUM
     Indication: ADENOCARCINOMA OF COLON
     Dosage: 400 MG/M2, QCY, EVERY-2 WEEKS
     Route: 042
     Dates: start: 20180626, end: 20180626
  7. FLUOROURACIL. [Suspect]
     Active Substance: FLUOROURACIL
     Dosage: 400 MG/M2, QCY
     Route: 040
     Dates: start: 20180821, end: 20180821
  8. BEVACIZUMAB. [Suspect]
     Active Substance: BEVACIZUMAB
     Dosage: 5 MG/KG, QCY
     Route: 042
     Dates: start: 20180821, end: 20180821
  9. OXALIPLATIN. [Suspect]
     Active Substance: OXALIPLATIN
     Indication: ADENOCARCINOMA OF COLON
     Dosage: EVERY-2 WEEKS
     Route: 042
     Dates: start: 20180626, end: 20180626
  10. FLUOROURACIL. [Suspect]
     Active Substance: FLUOROURACIL
     Indication: ADENOCARCINOMA OF COLON
     Dosage: BY INFUSION PUMP IN 48 HOURS, EVERY 2 WEEKS
     Route: 042
     Dates: start: 20180626, end: 20180626
  11. FOLINIC ACID [Suspect]
     Active Substance: LEUCOVORIN
     Dosage: UNK UNK, QCY, EVERY-2 WEEKS
     Route: 042
  12. CALCIUM FOLINATE [Concomitant]
     Active Substance: LEUCOVORIN CALCIUM
     Dosage: 400 MG/M2, QCY
     Route: 042
     Dates: start: 20180821, end: 20180821

REACTIONS (10)
  - Vomiting [Fatal]
  - Urinary incontinence [Fatal]
  - Muscular weakness [Fatal]
  - Gait disturbance [Fatal]
  - Paraplegia [Fatal]
  - Paraparesis [Fatal]
  - Toxicity to various agents [Fatal]
  - Device dislocation [Fatal]
  - Myelopathy [Fatal]
  - Back pain [Fatal]

NARRATIVE: CASE EVENT DATE: 2018
